FAERS Safety Report 22817130 (Version 3)
Quarter: 2024Q3

REPORT INFORMATION
  Report Type: Spontaneous
  Country: NL (occurrence: NL)
  Receive Date: 20230812
  Receipt Date: 20240813
  Transmission Date: 20241017
  Serious: Yes (Other)
  Sender: TEVA
  Company Number: None

PATIENT
  Age: 24 Year
  Sex: Female
  Weight: 75 kg

DRUGS (7)
  1. TRIAMCINOLONE [Suspect]
     Active Substance: TRIAMCINOLONE
     Indication: Eczema
     Dosage: TRIAMCINOLONE ACETONIDE / BRAND NAME NOT SPECIFIED, APPLY TWICE A DAY
     Route: 065
     Dates: start: 20081210
  2. ELIDEL [Suspect]
     Active Substance: PIMECROLIMUS
     Indication: Eczema
     Dosage: 2 X PER DAY, EVERY OTHER DAY (ALTERNATING WITH STEROIDS)
     Route: 065
     Dates: start: 20201010
  3. CLOBEX [Suspect]
     Active Substance: CLOBETASOL PROPIONATE
     Indication: Eczema
     Dosage: APPLY TWICE A DAY
     Route: 065
     Dates: start: 20081210
  4. HYDROCORTISONE\MICONAZOLE [Suspect]
     Active Substance: HYDROCORTISONE\MICONAZOLE
     Indication: Eczema
     Dosage: APPLY TWICE A DAY, 10/20MG/G / BRAND NAME NOT SPECIFIED
     Route: 065
     Dates: start: 20081210
  5. HYDROCORTISONE ACETATE [Suspect]
     Active Substance: HYDROCORTISONE ACETATE
     Indication: Eczema
     Dosage: HYDROCORTISON FAGRON FNA
     Route: 065
     Dates: start: 20081210
  6. TRIAMCINOLONE ACETONIDE [Suspect]
     Active Substance: TRIAMCINOLONE ACETONIDE
     Indication: Eczema
     Dosage: TRIAMCINOLONEACET 0.1% CETOMACROGOL OINTMENT DMB, APPLY TWICE A DAY
     Route: 065
     Dates: start: 20081210
  7. CLOBETASOL [Suspect]
     Active Substance: CLOBETASOL
     Indication: Eczema
     Dosage: 0.05% APPLY TWICE A DAY
     Route: 065
     Dates: start: 20081210

REACTIONS (2)
  - Drug dependence [Recovered/Resolved]
  - Eczema [Recovered/Resolved]

NARRATIVE: CASE EVENT DATE: 20190101
